FAERS Safety Report 8275364-1 (Version None)
Quarter: 2012Q2

REPORT INFORMATION
  Report Type: 
  Country: None (occurrence: None)
  Receive Date: 20120411
  Receipt Date: 20120402
  Transmission Date: 20120825
  Serious: Yes (Hospitalization)
  Sender: FDA-Public Use
  Company Number: FR-FRI-1000029721

PATIENT
  Age: 52 Year
  Sex: Male

DRUGS (6)
  1. ZYPREXA [Suspect]
     Indication: DEPRESSION
     Dosage: 5 MG
     Route: 048
     Dates: start: 20111123, end: 20120105
  2. RASILEZ HCT [Suspect]
     Indication: HYPERTENSION
     Dosage: 150MG/12.5 MG DAILY
     Route: 048
     Dates: end: 20120121
  3. ALPRAZOLAM [Suspect]
     Indication: MENTAL DISORDER
     Dosage: 0.75 MG
     Route: 048
     Dates: end: 20120121
  4. ESCITALOPRAM [Suspect]
     Indication: DEPRESSION
     Dosage: 20 MG
     Route: 048
     Dates: start: 20111001, end: 20120101
  5. ANAFRANIL [Suspect]
     Indication: DEPRESSION
     Dosage: 37.5 MG
     Route: 048
     Dates: start: 20120101, end: 20120121
  6. PRAZEPAM [Concomitant]

REACTIONS (4)
  - HEPATIC FAILURE [None]
  - HEPATIC ENZYME INCREASED [None]
  - JAUNDICE [None]
  - CONDITION AGGRAVATED [None]
